FAERS Safety Report 18055055 (Version 3)
Quarter: 2020Q4

REPORT INFORMATION
  Report Type: Report from Study
  Country: None (occurrence: RU)
  Receive Date: 20200722
  Receipt Date: 20201014
  Transmission Date: 20210113
  Serious: Yes (Hospitalization, Other)
  Sender: FDA-Public Use
  Company Number: RU-ABBVIE-20P-251-3487265-00

PATIENT
  Age: 28 Year
  Sex: Male
  Weight: 62.3 kg

DRUGS (2)
  1. UPADACITINIB [Suspect]
     Active Substance: UPADACITINIB
     Indication: DERMATITIS ATOPIC
     Route: 048
     Dates: start: 20190408, end: 20200414
  2. LIPOBASE BABY [Concomitant]
     Indication: DRY SKIN PROPHYLAXIS
     Route: 003
     Dates: start: 20181218

REACTIONS (1)
  - Pulmonary tuberculosis [Not Recovered/Not Resolved]

NARRATIVE: CASE EVENT DATE: 20200410
